FAERS Safety Report 15334801 (Version 1)
Quarter: 2018Q3

REPORT INFORMATION
  Report Type: Spontaneous
  Country: US (occurrence: US)
  Receive Date: 20180827
  Receipt Date: 20180827
  Transmission Date: 20181010
  Serious: Yes (Hospitalization)
  Sender: FDA-Public Use
  Company Number: None

PATIENT
  Age: 56 Year
  Sex: Female

DRUGS (1)
  1. LOVASTATIN. [Suspect]
     Active Substance: LOVASTATIN
     Indication: RENAL TRANSPLANT
     Route: 048
     Dates: start: 20150128

REACTIONS (4)
  - Diarrhoea [None]
  - Dehydration [None]
  - Vomiting [None]
  - Nausea [None]
